FAERS Safety Report 5707673-1 (Version None)
Quarter: 2008Q2

REPORT INFORMATION
  Report Type: 
  Country: None (occurrence: None)
  Receive Date: 20080416
  Receipt Date: 20080404
  Transmission Date: 20081010
  Serious: Yes (Other)
  Sender: FDA-Public Use
  Company Number: US-PFIZER INC-2008030734

PATIENT
  Sex: Male
  Weight: 120.2 kg

DRUGS (5)
  1. CHANTIX [Suspect]
     Indication: SMOKING CESSATION THERAPY
     Dates: start: 20080320, end: 20080321
  2. VYTORIN [Concomitant]
  3. HYZAAR [Concomitant]
  4. COREG [Concomitant]
  5. METFORMIN HYDROCHLORIDE/SITAGLIPTIN [Concomitant]

REACTIONS (2)
  - ADVERSE DRUG REACTION [None]
  - MENINGITIS ASEPTIC [None]
